FAERS Safety Report 24544922 (Version 1)
Quarter: 2024Q4

REPORT INFORMATION
  Report Type: Spontaneous
  Country: US (occurrence: None)
  Receive Date: 20241023
  Receipt Date: 20241023
  Transmission Date: 20250114
  Serious: Yes (unspecified)
  Sender: Public
  Company Number: None

PATIENT
  Age: 35 Year
  Sex: Female
  Weight: 58.5 kg

DRUGS (4)
  1. CIPROFLOXACIN [Suspect]
     Active Substance: CIPROFLOXACIN
     Indication: Sinusitis
     Dates: start: 20240918, end: 20240927
  2. COSENTYX [Concomitant]
     Active Substance: SECUKINUMAB
  3. METHOTREXATE [Concomitant]
     Active Substance: METHOTREXATE
  4. SPIRONOLACTONE [Concomitant]
     Active Substance: SPIRONOLACTONE

REACTIONS (9)
  - Arthralgia [None]
  - Tendonitis [None]
  - Arthralgia [None]
  - Arthralgia [None]
  - Arthralgia [None]
  - Arthralgia [None]
  - Pain in extremity [None]
  - Adverse drug reaction [None]
  - Toxicity to various agents [None]

NARRATIVE: CASE EVENT DATE: 20240920
